FAERS Safety Report 4697224-5 (Version None)
Quarter: 2005Q2

REPORT INFORMATION
  Report Type: 
  Country: None (occurrence: None)
  Receive Date: 20050622
  Receipt Date: 20050511
  Transmission Date: 20051028
  Serious: Yes (Hospitalization)
  Sender: FDA-Public Use
  Company Number: JP-GLAXOSMITHKLINE-B0380898A

PATIENT
  Age: 45 Year
  Sex: Male
  Weight: 57 kg

DRUGS (12)
  1. VALTREX [Suspect]
     Indication: HERPES ZOSTER
     Dosage: 500MG PER DAY
     Route: 048
     Dates: start: 20050328, end: 20050328
  2. BUFFERIN [Concomitant]
     Dosage: 81MG PER DAY
     Route: 048
  3. ALLOPURINOL [Concomitant]
     Dosage: 100MG PER DAY
     Route: 048
  4. FASTIC [Concomitant]
     Dosage: 180MG PER DAY
     Route: 048
  5. GLUCOBAY [Concomitant]
     Dosage: 100MG PER DAY
     Route: 048
  6. JUVELA [Concomitant]
     Dosage: 100MG PER DAY
     Route: 048
  7. COLONEL [Concomitant]
     Dosage: 2U PER DAY
     Route: 048
  8. HICEE [Concomitant]
     Dosage: 2G PER DAY
     Route: 048
  9. ANPLAG [Concomitant]
     Dosage: 200MG PER DAY
     Route: 048
  10. VITAMEDIN [Concomitant]
     Dosage: 50MG PER DAY
     Route: 048
  11. ZYRTEC [Concomitant]
     Dosage: 10MG PER DAY
     Route: 048
  12. RENAGEL [Concomitant]
     Route: 048

REACTIONS (7)
  - DELIRIUM [None]
  - DEPRESSED LEVEL OF CONSCIOUSNESS [None]
  - DIZZINESS [None]
  - FEELING ABNORMAL [None]
  - HYPOGLYCAEMIA [None]
  - VISUAL DISTURBANCE [None]
  - VOMITING [None]
